FAERS Safety Report 5488292-1 (Version None)
Quarter: 2007Q4

REPORT INFORMATION
  Report Type: 
  Country: None (occurrence: None)
  Receive Date: 20071005
  Receipt Date: 20070814
  Transmission Date: 20080405
  Serious: Yes (Hospitalization)
  Sender: FDA-Public Use
  Company Number: PHEH2007US08369

PATIENT
  Age: 59 Year
  Sex: Male
  Weight: 90.7 kg

DRUGS (1)
  1. TEKTURNA [Suspect]
     Indication: HYPERTENSION
     Dosage: QD, ORAL
     Route: 048
     Dates: end: 20070526

REACTIONS (1)
  - GENERALISED OEDEMA [None]
